FAERS Safety Report 16677072 (Version 1)
Quarter: 2019Q3

REPORT INFORMATION
  Report Type: Spontaneous
  Country: SI (occurrence: SI)
  Receive Date: 20190807
  Receipt Date: 20190807
  Transmission Date: 20191004
  Serious: Yes (Other)
  Sender: FDA-Public Use
  Company Number: SI-JNJFOC-20190742308

PATIENT
  Age: 48 Year
  Sex: Female

DRUGS (2)
  1. FENTANYL. [Suspect]
     Active Substance: FENTANYL
     Indication: PAIN
     Dosage: MEDICATED DRESSINGS,?TRANSDERMAL PATCHES
     Route: 062
     Dates: start: 2012
  2. TRAMAL [Suspect]
     Active Substance: TRAMADOL
     Indication: PRODUCT USED FOR UNKNOWN INDICATION
     Dosage: 100 MG
     Route: 048
     Dates: start: 2007

REACTIONS (14)
  - Drug dependence [Recovered/Resolved]
  - Fluid retention [Recovered/Resolved]
  - Lymphadenopathy [Recovered/Resolved]
  - Abdominal distension [Recovered/Resolved]
  - Weight decreased [Recovering/Resolving]
  - Blood pressure increased [Recovered/Resolved]
  - Suicidal ideation [Recovered/Resolved]
  - Hot flush [Recovered/Resolved]
  - Hallucination [Recovered/Resolved]
  - Hyperhidrosis [Recovered/Resolved]
  - Immobile [Recovered/Resolved]
  - Anal incontinence [Recovered/Resolved]
  - Heart rate increased [Recovered/Resolved]
  - Urinary incontinence [Recovering/Resolving]

NARRATIVE: CASE EVENT DATE: 2007
